FAERS Safety Report 8819898 (Version 1)
Quarter: 2012Q4

REPORT INFORMATION
  Report Type: Report from Study
  Country: CA (occurrence: CA)
  Receive Date: 20121001
  Receipt Date: 20121001
  Transmission Date: 20130627
  Serious: Yes (Death, Hospitalization, Other)
  Sender: FDA-Public Use
  Company Number: CA-JNJFOC-20100403958

PATIENT
  Age: 55 Year
  Sex: Male

DRUGS (14)
  1. REMICADE [Suspect]
     Indication: PSORIASIS
     Route: 042
     Dates: start: 20091014, end: 20100316
  2. RABEPRAZOLE [Concomitant]
     Route: 048
  3. ALLOPURINOL [Concomitant]
     Route: 048
  4. RIFAXIMIN [Concomitant]
     Indication: HEPATIC ENCEPHALOPATHY
     Route: 048
     Dates: end: 2011
  5. RIFAXIMIN [Concomitant]
     Indication: HEPATIC ENCEPHALOPATHY
     Route: 048
     Dates: start: 2011
  6. PREDNISONE [Concomitant]
     Route: 048
  7. NADOLOL [Concomitant]
     Route: 048
  8. LACTULOSE [Concomitant]
     Route: 048
  9. FUROSEMIDE [Concomitant]
     Route: 048
  10. ALDACTONE [Concomitant]
     Route: 048
  11. NEXAVAR [Concomitant]
     Indication: HEPATIC NEOPLASM MALIGNANT
     Dates: end: 2011
  12. NEXAVAR [Concomitant]
     Indication: HEPATIC NEOPLASM MALIGNANT
     Dates: start: 20111028, end: 2011
  13. ZOPICLONE [Concomitant]
     Route: 048
  14. ZINC GLUCONATE [Concomitant]
     Route: 048

REACTIONS (9)
  - Hepatic failure [Fatal]
  - Hepatitis C [Fatal]
  - Hepatocellular carcinoma [Not Recovered/Not Resolved]
  - Hepatic cirrhosis [Fatal]
  - Renal failure [Fatal]
  - Peritonitis bacterial [Not Recovered/Not Resolved]
  - Sepsis [Not Recovered/Not Resolved]
  - Encephalopathy [Unknown]
  - Alpha haemolytic streptococcal infection [Unknown]
